FAERS Safety Report 10149060 (Version 1)
Quarter: 2014Q2

REPORT INFORMATION
  Report Type: Spontaneous
  Country: US (occurrence: None)
  Receive Date: 20140430
  Receipt Date: 20140430
  Transmission Date: 20141212
  Serious: Yes (Hospitalization)
  Sender: FDA-Public Use
  Company Number: None

PATIENT
  Age: 86 Year
  Sex: Male

DRUGS (1)
  1. WARFARIN [Suspect]
     Indication: ATRIAL FIBRILLATION
     Route: 048
     Dates: start: 20130612, end: 20140409

REACTIONS (5)
  - Epistaxis [None]
  - International normalised ratio increased [None]
  - Drug interaction [None]
  - Confusional state [None]
  - Haemoglobin decreased [None]
